FAERS Safety Report 8421821-4 (Version None)
Quarter: 2012Q2

REPORT INFORMATION
  Report Type: 
  Country: None (occurrence: None)
  Receive Date: 20120323
  Receipt Date: 20111216
  Transmission Date: 20120825
  Serious: Yes (Hospitalization)
  Sender: FDA-Public Use
  Company Number: 163-21880-11122173

PATIENT
  Age: 54 Year
  Sex: Female

DRUGS (9)
  1. CYCLOBENZAPRINE HCL (CYCLOBENZAPRINE HYDROCHLORIDE) [Concomitant]
  2. OXYCODONE HCL [Concomitant]
  3. CALCIUM +D +K (CALCIUM D3 ^STADA^) [Concomitant]
  4. REVLIMID [Suspect]
     Indication: MULTIPLE MYELOMA
     Dosage: 10 MG, 1 IN 1 D, PO
     Route: 048
     Dates: start: 20111031
  5. CRESTOR [Concomitant]
  6. LANTUS [Concomitant]
  7. FAMCICLOVIR [Concomitant]
  8. LACTULOSE [Concomitant]
  9. NOVOLOG [Concomitant]

REACTIONS (1)
  - FULL BLOOD COUNT DECREASED [None]
